FAERS Safety Report 8978162 (Version 2)
Quarter: 2013Q1

REPORT INFORMATION
  Report Type: Spontaneous
  Country: FR (occurrence: FR)
  Receive Date: 20121220
  Receipt Date: 20130107
  Transmission Date: 20140127
  Serious: Yes (Hospitalization)
  Sender: FDA-Public Use
  Company Number: FR-SANOFI-AVENTIS-2012SA087837

PATIENT
  Age: 79 Year
  Sex: Female

DRUGS (3)
  1. LOVENOX [Suspect]
     Indication: PRODUCT USED FOR UNKNOWN INDICATION
     Route: 058
     Dates: start: 201210, end: 20121103
  2. KETOPROFEN [Interacting]
     Indication: PRODUCT USED FOR UNKNOWN INDICATION
     Route: 042
     Dates: start: 20121011, end: 20121013
  3. NAPROXEN [Interacting]
     Indication: PRODUCT USED FOR UNKNOWN INDICATION
     Route: 048
     Dates: start: 20121018, end: 20121025

REACTIONS (3)
  - Duodenal ulcer perforation [Recovering/Resolving]
  - Melaena [Recovered/Resolved]
  - Anaemia [Recovering/Resolving]
